FAERS Safety Report 4886189-9 (Version None)
Quarter: 2006Q1

REPORT INFORMATION
  Report Type: 
  Country: None (occurrence: None)
  Receive Date: 20060117
  Receipt Date: 20060112
  Transmission Date: 20060701
  Serious: Yes (Other)
  Sender: FDA-Public Use
  Company Number: HQWYE916509DEC05

PATIENT
  Age: 80 Year
  Sex: Female

DRUGS (1)
  1. EUPANTOL                                      (PANTOPAZOLE) [Suspect]
     Route: 048
     Dates: start: 20051101, end: 20051101

REACTIONS (1)
  - MENIERE'S DISEASE [None]
